FAERS Safety Report 18960718 (Version 2)
Quarter: 2021Q1

REPORT INFORMATION
  Report Type: Report from Study
  Country: FR (occurrence: FR)
  Receive Date: 20210302
  Receipt Date: 20210312
  Transmission Date: 20210420
  Serious: Yes (Hospitalization)
  Sender: FDA-Public Use
  Company Number: FR-ROCHE-2769629

PATIENT
  Age: 75 Year
  Sex: Male
  Weight: 97 kg

DRUGS (2)
  1. BCG [Suspect]
     Active Substance: BCG VACCINE
     Indication: BLADDER CANCER
     Dosage: DATE OF LAST DOSE OF ADMINISTRATION: 02/FEB/2021
     Route: 043
     Dates: start: 20201026
  2. ATEZOLIZUMAB. [Suspect]
     Active Substance: ATEZOLIZUMAB
     Indication: BLADDER CANCER
     Dosage: DATE OF LAST DOSE OF ADMINISTRATION: 19/JAN/2021
     Route: 042

REACTIONS (3)
  - Disseminated Bacillus Calmette-Guerin infection [Not Recovered/Not Resolved]
  - Hepatitis [Not Recovered/Not Resolved]
  - Disseminated tuberculosis [Not Recovered/Not Resolved]

NARRATIVE: CASE EVENT DATE: 20210203
